FAERS Safety Report 22284118 (Version 1)
Quarter: 2023Q2

REPORT INFORMATION
  Report Type: Spontaneous
  Country: US (occurrence: None)
  Receive Date: 20230503
  Receipt Date: 20230503
  Transmission Date: 20230722
  Serious: Yes (Death)
  Sender: FDA-Public Use
  Company Number: None

PATIENT
  Age: 55 Year
  Sex: Female
  Weight: 49.49 kg

DRUGS (17)
  1. CYRAMZA [Suspect]
     Active Substance: RAMUCIRUMAB
     Indication: Lung carcinoma cell type unspecified stage 0
     Dosage: 540MG Q21DAYS  ORAL?
     Route: 048
  2. ALBUTEROL [Concomitant]
     Active Substance: ALBUTEROL
  3. AMOXICILLIN-POT [Concomitant]
  4. CYCLOBENZAPRINE [Concomitant]
     Active Substance: CYCLOBENZAPRINE
  5. DIFLUCAN [Concomitant]
     Active Substance: FLUCONAZOLE
  6. ELIQUIS [Concomitant]
     Active Substance: APIXABAN
  7. GUAFENESIN-CODEINE [Concomitant]
  8. NORCO [Concomitant]
     Active Substance: ACETAMINOPHEN\HYDROCODONE BITARTRATE
  9. LIDOCAINE\PRILOCAINE [Concomitant]
     Active Substance: LIDOCAINE\PRILOCAINE
  10. MONTELUKAST [Concomitant]
     Active Substance: MONTELUKAST SODIUM
  11. MS CONTIN [Concomitant]
     Active Substance: MORPHINE SULFATE
  12. OPDIVO [Concomitant]
     Active Substance: NIVOLUMAB
  13. PREDNISONE [Concomitant]
     Active Substance: PREDNISONE
  14. PRILOSEC [Concomitant]
     Active Substance: OMEPRAZOLE MAGNESIUM
  15. PROMETHAZINE [Concomitant]
     Active Substance: PROMETHAZINE HYDROCHLORIDE
  16. XANAX XR [Concomitant]
     Active Substance: ALPRAZOLAM
  17. YERVOY [Concomitant]
     Active Substance: IPILIMUMAB

REACTIONS (1)
  - Death [None]

NARRATIVE: CASE EVENT DATE: 20230501
